FAERS Safety Report 8501696-5 (Version None)
Quarter: 2012Q3

REPORT INFORMATION
  Report Type: 
  Country: None (occurrence: None)
  Receive Date: 20120711
  Receipt Date: 20120703
  Transmission Date: 20120928
  Serious: No
  Sender: FDA-Public Use
  Company Number: US-BIOGENIDEC-2012BI014574

PATIENT
  Sex: Female

DRUGS (4)
  1. TYSABRI [Suspect]
     Route: 042
     Dates: start: 20120501
  2. AVONEX [Concomitant]
     Route: 030
     Dates: start: 19990301
  3. TYSABRI [Suspect]
     Indication: MULTIPLE SCLEROSIS
     Route: 042
     Dates: start: 20050216
  4. TYSABRI [Suspect]
     Route: 042
     Dates: start: 20071010, end: 20080226

REACTIONS (5)
  - FATIGUE [None]
  - GAIT DISTURBANCE [None]
  - FALL [None]
  - PERONEAL NERVE PALSY [None]
  - MULTIPLE SCLEROSIS RELAPSE [None]
